FAERS Safety Report 5514884-7 (Version None)
Quarter: 2007Q4

REPORT INFORMATION
  Report Type: 
  Country: None (occurrence: None)
  Receive Date: 20071113
  Receipt Date: 20061006
  Transmission Date: 20080405
  Serious: No
  Sender: FDA-Public Use
  Company Number: A0620729A

PATIENT
  Age: 53 Year
  Sex: Male
  Weight: 90 kg

DRUGS (9)
  1. COREG [Suspect]
     Indication: DRUG USE FOR UNKNOWN INDICATION
     Route: 065
  2. PLAVIX [Suspect]
  3. ASPIRIN [Suspect]
  4. DIOVAN [Concomitant]
  5. LOPRESSOR [Concomitant]
  6. LIPITOR [Concomitant]
  7. NIASPAN [Concomitant]
  8. IMDUR [Concomitant]
  9. FOLIC ACID [Concomitant]

REACTIONS (1)
  - CONTUSION [None]
